FAERS Safety Report 17251106 (Version 1)
Quarter: 2019Q4

REPORT INFORMATION
  Report Type: Spontaneous
  Country: US (occurrence: US)
  Receive Date: 20191213
  Receipt Date: 20191213
  Transmission Date: 20200122
  Serious: Yes (Death, Life-Threatening, Hospitalization, Disabling, Other)
  Sender: FDA-Public Use
  Company Number: None

PATIENT
  Age: 70 Year
  Sex: Female

DRUGS (9)
  1. HYDROCODONE [Concomitant]
     Active Substance: HYDROCODONE
  2. MORPHINE SULFATE. [Concomitant]
     Active Substance: MORPHINE SULFATE
  3. ZENPEP [Concomitant]
     Active Substance: PANCRELIPASE AMYLASE\PANCRELIPASE LIPASE\PANCRELIPASE PROTEASE
  4. ACID REDUCER [Concomitant]
  5. LUTATHERA [Suspect]
     Active Substance: LUTETIUM OXODOTREOTIDE LU-177
     Indication: PANCREATIC NEUROENDOCRINE TUMOUR
     Dosage: ?          OTHER FREQUENCY:EVERY TWO MONTHS;?
     Dates: start: 20180920, end: 20190313
  6. TEMAZEPAM. [Concomitant]
     Active Substance: TEMAZEPAM
  7. ZOFRAN [Concomitant]
     Active Substance: ONDANSETRON HYDROCHLORIDE
  8. OCTREOTIDE. [Concomitant]
     Active Substance: OCTREOTIDE
  9. LORAZEPAM. [Concomitant]
     Active Substance: LORAZEPAM

REACTIONS (7)
  - Decreased appetite [None]
  - Ascites [None]
  - Vomiting [None]
  - Cachexia [None]
  - Pain [None]
  - Dyspnoea [None]
  - Nausea [None]

NARRATIVE: CASE EVENT DATE: 201812
